FAERS Safety Report 9156272 (Version 1)
Quarter: 2013Q1

REPORT INFORMATION
  Report Type: Spontaneous
  Country: US (occurrence: US)
  Receive Date: 20130110
  Receipt Date: 20130110
  Transmission Date: 20140127
  Serious: Yes (Other)
  Sender: FDA-Public Use
  Company Number: US-RB-048134-13

PATIENT
  Age: 61 Year
  Sex: Female

DRUGS (4)
  1. MUCINEX UNKNOWN TYPE [Suspect]
     Indication: RESPIRATORY TRACT CONGESTION
     Dosage: 1 DOSE.
     Route: 048
     Dates: start: 20121228
  2. MUCINEX UNKNOWN TYPE [Suspect]
     Indication: NASOPHARYNGITIS
     Dosage: 1 DOSE.
     Route: 048
     Dates: start: 20121228
  3. ADVIL [Concomitant]
     Indication: HEADACHE
     Dates: start: 20121229
  4. ACTONEL [Concomitant]
     Indication: PRODUCT USED FOR UNKNOWN INDICATION

REACTIONS (4)
  - Loss of consciousness [Recovered/Resolved]
  - Headache [Recovered/Resolved]
  - Dizziness [Recovered/Resolved]
  - Drug ineffective [Not Recovered/Not Resolved]
